FAERS Safety Report 20137261 (Version 6)
Quarter: 2022Q3

REPORT INFORMATION
  Report Type: Report from Study
  Country: ES (occurrence: ES)
  Receive Date: 20211201
  Receipt Date: 20220916
  Transmission Date: 20221027
  Serious: Yes (Other)
  Sender: FDA-Public Use
  Company Number: ES-LEO Pharma-339780

PATIENT
  Age: 53 Year
  Sex: Female
  Weight: 86 kg

DRUGS (12)
  1. BRODALUMAB [Suspect]
     Active Substance: BRODALUMAB
     Indication: Psoriasis
     Route: 058
     Dates: start: 20210623, end: 20211110
  2. ALPRAZOLAM [Concomitant]
     Active Substance: ALPRAZOLAM
     Indication: Depression
     Dosage: PRN
     Route: 048
     Dates: start: 20000101
  3. BUDESONIDE\FORMOTEROL [Concomitant]
     Active Substance: BUDESONIDE\FORMOTEROL
     Indication: Asthma
     Dosage: PRN, 160/4,5 MCG (AS REQUIRED)
     Route: 055
     Dates: start: 19980101
  4. TERBUTALINE [Concomitant]
     Active Substance: TERBUTALINE
     Indication: Asthma
     Route: 048
     Dates: start: 20210504
  5. MONTELUKAST [Concomitant]
     Active Substance: MONTELUKAST SODIUM
     Indication: Asthma
     Route: 048
     Dates: start: 20210504
  6. ALBUTEROL [Concomitant]
     Active Substance: ALBUTEROL
     Indication: Asthma
     Dosage: AS REQUIRED
     Route: 055
     Dates: start: 1998
  7. METOCLOPRAMIDE [Concomitant]
     Active Substance: METOCLOPRAMIDE
     Indication: Bariatric gastric balloon removal
     Route: 048
     Dates: start: 20210818
  8. LORAZEPAM [Concomitant]
     Active Substance: LORAZEPAM
     Indication: Insomnia
     Route: 048
     Dates: start: 20210903
  9. VENLAFAXINE [Concomitant]
     Active Substance: VENLAFAXINE HYDROCHLORIDE
     Indication: Depression
     Route: 048
     Dates: start: 20150922, end: 20211115
  10. OMEPRAZOLE [Concomitant]
     Active Substance: OMEPRAZOLE
     Indication: Bariatric gastric balloon removal
     Route: 048
     Dates: start: 20210818
  11. COMIRNATY [Concomitant]
     Active Substance: TOZINAMERAN
     Indication: COVID-19 prophylaxis
     Dates: start: 20210604, end: 20210604
  12. COMIRNATY [Concomitant]
     Active Substance: TOZINAMERAN
     Dates: start: 20211019, end: 20211019

REACTIONS (1)
  - Suicidal ideation [Recovered/Resolved]

NARRATIVE: CASE EVENT DATE: 20211115
